FAERS Safety Report 7451265-3 (Version None)
Quarter: 2011Q2

REPORT INFORMATION
  Report Type: 
  Country: None (occurrence: None)
  Receive Date: 20110502
  Receipt Date: 20110422
  Transmission Date: 20111010
  Serious: Yes (Hospitalization)
  Sender: FDA-Public Use
  Company Number: IT-ASTRAZENECA-2011SE23577

PATIENT
  Sex: Female

DRUGS (5)
  1. EUTIROX [Concomitant]
     Indication: HYPOTHYROIDISM
     Route: 048
  2. MODURETIC 5-50 [Concomitant]
     Indication: HYPERTENSION
     Route: 048
  3. PARACODINA [Concomitant]
     Indication: COUGH
     Route: 048
  4. EUTIROX [Concomitant]
     Route: 048
  5. IRESSA [Suspect]
     Indication: NON-SMALL CELL LUNG CANCER STAGE IV
     Route: 048
     Dates: start: 20101130, end: 20101202

REACTIONS (2)
  - HEMIPLEGIA [None]
  - EMBOLIC STROKE [None]
